FAERS Safety Report 7322494-4 (Version None)
Quarter: 2011Q1

REPORT INFORMATION
  Report Type: 
  Country: None (occurrence: None)
  Receive Date: 20110301
  Receipt Date: 20100826
  Transmission Date: 20110831
  Serious: Yes (Other)
  Sender: FDA-Public Use
  Company Number: US-BAYER-201013994NA

PATIENT
  Sex: Female
  Weight: 68.182 kg

DRUGS (21)
  1. YASMIN [Suspect]
     Indication: POLYCYSTIC OVARIES
     Route: 048
     Dates: start: 20060901, end: 20071101
  2. GABAPENTIN [Concomitant]
     Indication: MIGRAINE
     Dates: start: 20090501, end: 20100101
  3. WELLBUTRIN [Concomitant]
  4. YAZ [Suspect]
     Route: 048
     Dates: start: 20081001, end: 20090601
  5. DIFFERIN [Concomitant]
     Indication: ACNE
     Dates: start: 20080101, end: 20090901
  6. LORTAB [Concomitant]
     Indication: MIGRAINE
  7. YAZ [Suspect]
     Dosage: UNK
     Dates: start: 20090507
  8. YASMIN [Suspect]
     Indication: ACNE
  9. DIFFERIN [Concomitant]
     Dates: start: 20091101
  10. INDERAL LA [Concomitant]
     Indication: MIGRAINE
  11. CIPRODEX [Concomitant]
     Dates: start: 20080501
  12. DIFFERIN [Concomitant]
     Dates: start: 20091101
  13. OCELLA [Suspect]
     Indication: ACNE
  14. CLINDAMYCIN [Concomitant]
     Dates: start: 20080801
  15. CEPHALEXIN [Concomitant]
  16. ASPIRIN [Concomitant]
  17. YAZ [Suspect]
     Indication: ACNE
     Route: 048
     Dates: start: 20071201, end: 20080401
  18. OCELLA [Suspect]
     Indication: POLYCYSTIC OVARIES
     Route: 048
     Dates: start: 20090701, end: 20090801
  19. CLOMIPHENE CITRATE [Concomitant]
     Indication: INFERTILITY
     Dates: start: 20080501, end: 20081101
  20. DOXYCYCLINE HYCLATE [Concomitant]
     Dates: start: 20080401, end: 20081001
  21. FLONASE [Concomitant]

REACTIONS (5)
  - VISUAL FIELD DEFECT [None]
  - MIGRAINE WITH AURA [None]
  - AURA [None]
  - TRANSIENT ISCHAEMIC ATTACK [None]
  - PARADOXICAL EMBOLISM [None]
